FAERS Safety Report 4344044-7 (Version None)
Quarter: 2004Q2

REPORT INFORMATION
  Report Type: 
  Country: None (occurrence: None)
  Receive Date: 20040419
  Receipt Date: 20040405
  Transmission Date: 20050107
  Serious: Yes (Other)
  Sender: FDA-Public Use
  Company Number: HQWYE430512APR04

PATIENT
  Age: 25 Year
  Sex: Female

DRUGS (1)
  1. MINOCIN [Suspect]

REACTIONS (7)
  - DERMATITIS EXFOLIATIVE [None]
  - HEPATIC ENZYME INCREASED [None]
  - HYPERSENSITIVITY [None]
  - LYMPHADENOPATHY [None]
  - PYREXIA [None]
  - RENAL DISORDER [None]
  - SPLENOMEGALY [None]
